FAERS Safety Report 4866195-0 (Version None)
Quarter: 2005Q4

REPORT INFORMATION
  Report Type: 
  Country: None (occurrence: None)
  Receive Date: 20051221
  Receipt Date: 20051209
  Transmission Date: 20060501
  Serious: Yes (Hospitalization)
  Sender: FDA-Public Use
  Company Number: 2005PV005046

PATIENT
  Sex: Female

DRUGS (2)
  1. BYETTA [Suspect]
     Indication: DIABETES MELLITUS NON-INSULIN-DEPENDENT
     Dosage: 5 MCG
     Dates: start: 20051123
  2. METFORMIN [Concomitant]

REACTIONS (5)
  - ASCITES [None]
  - ATELECTASIS [None]
  - BLOOD TRIGLYCERIDES INCREASED [None]
  - ILEUS [None]
  - PANCREATITIS [None]
